FAERS Safety Report 16237240 (Version 13)
Quarter: 2021Q2

REPORT INFORMATION
  Report Type: Spontaneous
  Country: CA (occurrence: CA)
  Receive Date: 20190425
  Receipt Date: 20210525
  Transmission Date: 20210716
  Serious: Yes (Other)
  Sender: FDA-Public Use
  Company Number: CA-CELLTRION INC.-2016CA014564

PATIENT

DRUGS (28)
  1. INFLECTRA [Suspect]
     Active Substance: INFLIXIMAB-DYYB
     Dosage: 333 MG, EVERY 6 WEEKS
     Route: 042
     Dates: start: 20180105
  2. INFLECTRA [Suspect]
     Active Substance: INFLIXIMAB-DYYB
     Dosage: 5 MG/KG, EVERY 6 WEEKS
     Route: 042
     Dates: start: 20190305
  3. INFLECTRA [Suspect]
     Active Substance: INFLIXIMAB-DYYB
     Dosage: 5 MG/KG, EVERY 6 WEEKS
     Route: 042
     Dates: start: 20200611
  4. APO MOMETASONE [Concomitant]
     Active Substance: MOMETASONE
     Indication: NASAL DISORDER
     Dosage: 50 MG, 1?2 TIMES PER DAY
     Route: 045
     Dates: start: 20170430
  5. CICLESONIDE [Concomitant]
     Active Substance: CICLESONIDE
     Indication: NASAL DISORDER
     Dosage: 50 MG,1?2 TIMES PER DAY
     Route: 045
     Dates: start: 20170430
  6. DILAUDID [Concomitant]
     Active Substance: HYDROMORPHONE HYDROCHLORIDE
     Dosage: UNK
  7. ONDANSETRON ALPHAPHARM [Concomitant]
     Indication: NAUSEA
     Dosage: 4 MG, 1X/DAY PRN
     Route: 048
  8. ATIVAN [Concomitant]
     Active Substance: LORAZEPAM
     Dosage: UNK
     Route: 065
     Dates: start: 2014, end: 2017
  9. INFLECTRA [Suspect]
     Active Substance: INFLIXIMAB-DYYB
     Dosage: 333 MG, EVERY 6 WEEKS
     Route: 042
     Dates: start: 20180329
  10. INFLECTRA [Suspect]
     Active Substance: INFLIXIMAB-DYYB
     Dosage: 333 MG EVERY 6 WEEKS
     Route: 042
     Dates: start: 20180914
  11. ELAVIL [Concomitant]
     Active Substance: AMITRIPTYLINE HYDROCHLORIDE
     Dosage: 1 DF, AS NEEDED AT NIGHT
     Route: 048
  12. CBD OIL [Concomitant]
     Active Substance: CANNABIDIOL\HERBALS
     Dosage: UNK
  13. INFLECTRA [Suspect]
     Active Substance: INFLIXIMAB-DYYB
     Dosage: 5 MG/KG, EVERY 6 WEEKS
     Route: 042
     Dates: start: 20210331
  14. INFLECTRA [Suspect]
     Active Substance: INFLIXIMAB-DYYB
     Dosage: 5 MG/KG, EVERY 6 WEEKS
     Route: 042
     Dates: start: 20200204
  15. INFLECTRA [Suspect]
     Active Substance: INFLIXIMAB-DYYB
     Dosage: 5 MG/KG, EVERY 6 WEEKS
     Route: 042
     Dates: start: 20201014
  16. INFLECTRA [Suspect]
     Active Substance: INFLIXIMAB-DYYB
     Dosage: 5 MG/KG, EVERY 6 WEEKS
     Route: 042
     Dates: start: 20190416
  17. INFLECTRA [Suspect]
     Active Substance: INFLIXIMAB-DYYB
     Dosage: 5 MG/KG, EVERY 6 WEEKS
     Route: 042
     Dates: start: 20200429
  18. PERCOCET [Concomitant]
     Active Substance: ACETAMINOPHEN\OXYCODONE HYDROCHLORIDE
     Dosage: UNK, AS NEEDED
  19. PERCOCET [Concomitant]
     Active Substance: ACETAMINOPHEN\OXYCODONE HYDROCHLORIDE
     Dosage: 5 MG, 1X/DAY PRN
     Route: 048
  20. SEASONIQUE [Concomitant]
     Active Substance: ETHINYL ESTRADIOL\LEVONORGESTREL
     Indication: CONTRACEPTION
     Dosage: UNK, 1X/DAY
     Route: 065
  21. IMODIUM [Concomitant]
     Active Substance: LOPERAMIDE HYDROCHLORIDE
     Dosage: UNK
  22. INFLECTRA [Suspect]
     Active Substance: INFLIXIMAB-DYYB
     Indication: CROHN^S DISEASE
     Dosage: 324.5 MG, EVERY 8 WEEKS
     Route: 042
     Dates: start: 20161118, end: 20171013
  23. INFLECTRA [Suspect]
     Active Substance: INFLIXIMAB-DYYB
     Dosage: 333 MG, EVERY 6 WEEKS
     Route: 042
     Dates: start: 20180105
  24. INFLECTRA [Suspect]
     Active Substance: INFLIXIMAB-DYYB
     Dosage: 5 MG/KG, EVERY 6 WEEKS
     Route: 042
     Dates: start: 20181029
  25. INFLECTRA [Suspect]
     Active Substance: INFLIXIMAB-DYYB
     Dosage: 333 MG, EVERY 6 WEEKS
     Route: 042
     Dates: start: 20171124
  26. INFLECTRA [Suspect]
     Active Substance: INFLIXIMAB-DYYB
     Dosage: 333 MG, EVERY 6 WEEKS
     Route: 042
     Dates: start: 20180216
  27. INFLECTRA [Suspect]
     Active Substance: INFLIXIMAB-DYYB
     Dosage: 5 MG/KG, EVERY 6 WEEKS
     Route: 042
     Dates: start: 20200318
  28. TYLENOL WITH CODEINE [Concomitant]
     Active Substance: ACETAMINOPHEN\CODEINE PHOSPHATE
     Dosage: UNK, AS NEEDED

REACTIONS (15)
  - Abdominal pain upper [Not Recovered/Not Resolved]
  - Stress [Unknown]
  - Blood pressure fluctuation [Unknown]
  - Therapeutic response unexpected [Recovering/Resolving]
  - Malaise [Unknown]
  - Arthritis [Unknown]
  - Arthralgia [Unknown]
  - Gastric ulcer [Unknown]
  - Insomnia [Unknown]
  - Condition aggravated [Unknown]
  - Nasopharyngitis [Unknown]
  - Muscle spasms [Unknown]
  - Rash [Not Recovered/Not Resolved]
  - Off label use [Unknown]
  - Feeling hot [Unknown]

NARRATIVE: CASE EVENT DATE: 2017
